FAERS Safety Report 9891968 (Version 3)
Quarter: 2014Q1

REPORT INFORMATION
  Report Type: Spontaneous
  Country: US (occurrence: None)
  Receive Date: 20140210
  Receipt Date: 20140304
  Transmission Date: 20141002
  Serious: Yes (Other)
  Sender: FDA-Public Use
  Company Number: 2014-00018

PATIENT
  Age: 70 Year
  Sex: Male
  Weight: 120.2 kg

DRUGS (1)
  1. ZICAM INTENSE SINUS RELIEF NASAL GEL [Suspect]
     Indication: NASAL CONGESTION
     Dosage: 1X DAILY EVERY 3-4 DAYS
     Dates: start: 20140113, end: 20140122

REACTIONS (5)
  - Middle insomnia [None]
  - Epistaxis [None]
  - Blood pressure increased [None]
  - Asthenia [None]
  - Dizziness [None]
